FAERS Safety Report 22659246 (Version 1)
Quarter: 2023Q2

REPORT INFORMATION
  Report Type: Spontaneous
  Country: US (occurrence: US)
  Receive Date: 20230630
  Receipt Date: 20230630
  Transmission Date: 20230721
  Serious: Yes (Hospitalization, Other)
  Sender: FDA-Public Use
  Company Number: US-002147023-NVSC2023US147426

PATIENT
  Age: 83 Year
  Sex: Male

DRUGS (1)
  1. AZITHROMYCIN [Suspect]
     Active Substance: AZITHROMYCIN
     Indication: Chronic obstructive pulmonary disease
     Dosage: 3 TIMES, WEEKLY
     Route: 065

REACTIONS (1)
  - Hallucinations, mixed [Recovered/Resolved]
